FAERS Safety Report 6212369-6 (Version None)
Quarter: 2009Q2

REPORT INFORMATION
  Report Type: 
  Country: None (occurrence: None)
  Receive Date: 20090529
  Receipt Date: 20090520
  Transmission Date: 20091009
  Serious: Yes (Hospitalization)
  Sender: FDA-Public Use
  Company Number: CLOF-1000477

PATIENT
  Age: 22 Year
  Sex: Male

DRUGS (2)
  1. CLOLAR [Suspect]
     Indication: ACUTE LYMPHOCYTIC LEUKAEMIA
     Dosage: 40 MG/M2, QD
     Dates: start: 20090216, end: 20090219
  2. CYCLOPHOSPHAMIDE [Suspect]
     Indication: ACUTE LYMPHOCYTIC LEUKAEMIA
     Dosage: 400 MG/M2, QD
     Dates: start: 20090216, end: 20090219

REACTIONS (3)
  - DRUG TOXICITY [None]
  - HEPATITIS VIRAL [None]
  - HEPATOTOXICITY [None]
